FAERS Safety Report 16405373 (Version 2)
Quarter: 2019Q2

REPORT INFORMATION
  Report Type: Spontaneous
  Country: US (occurrence: US)
  Receive Date: 20190607
  Receipt Date: 20190627
  Transmission Date: 20190711
  Serious: No
  Sender: FDA-Public Use
  Company Number: US-ACTELION-A-NJ2019-190667

PATIENT
  Age: 61 Year
  Sex: Female

DRUGS (1)
  1. OPSUMIT [Suspect]
     Active Substance: MACITENTAN
     Indication: PULMONARY ARTERIAL HYPERTENSION
     Dosage: 10 MG, QD
     Route: 048
     Dates: start: 20190423, end: 20190617

REACTIONS (3)
  - Oedema peripheral [Not Recovered/Not Resolved]
  - Musculoskeletal stiffness [Unknown]
  - Oedema [Unknown]

NARRATIVE: CASE EVENT DATE: 201904
